FAERS Safety Report 5156426-4 (Version None)
Quarter: 2006Q4

REPORT INFORMATION
  Report Type: 
  Country: None (occurrence: None)
  Receive Date: 20061122
  Receipt Date: 20060908
  Transmission Date: 20070319
  Serious: Yes (Other)
  Sender: FDA-Public Use
  Company Number: CN-ROCHE-462710

PATIENT
  Age: 37 Year
  Sex: Female

DRUGS (1)
  1. XENICAL [Suspect]
     Indication: OBESITY
     Route: 048
     Dates: start: 20060815, end: 20060830

REACTIONS (3)
  - CHOLECYSTITIS ACUTE [None]
  - HEPATIC NECROSIS [None]
  - HEPATIC NEOPLASM MALIGNANT [None]
